FAERS Safety Report 24536488 (Version 2)
Quarter: 2024Q4

REPORT INFORMATION
  Report Type: Spontaneous
  Country: US (occurrence: US)
  Receive Date: 20241022
  Receipt Date: 20241118
  Transmission Date: 20250115
  Serious: No
  Sender: SANOFI AVENTIS
  Company Number: US-SA-2024SA296820

PATIENT
  Age: 20 Year
  Sex: Male

DRUGS (9)
  1. TZIELD [Suspect]
     Active Substance: TEPLIZUMAB-MZWV
     Indication: Diabetes prophylaxis
     Dosage: 128.05 UG, 1X
     Route: 042
     Dates: start: 20240927, end: 20240927
  2. TZIELD [Suspect]
     Active Substance: TEPLIZUMAB-MZWV
     Dosage: 246.25 UG, 1X
     Route: 042
     Dates: start: 20240928, end: 20240928
  3. TZIELD [Suspect]
     Active Substance: TEPLIZUMAB-MZWV
     Dosage: 492.5 UG, 1X
     Route: 042
     Dates: start: 20240929, end: 20240929
  4. TZIELD [Suspect]
     Active Substance: TEPLIZUMAB-MZWV
     Dosage: 985 UG, 1X
     Route: 042
     Dates: start: 20240930, end: 20240930
  5. TZIELD [Suspect]
     Active Substance: TEPLIZUMAB-MZWV
     Dosage: 2021.1 UG, QD
     Route: 042
     Dates: start: 20241001, end: 20241010
  6. IBUPROFEN [Concomitant]
     Active Substance: IBUPROFEN
     Indication: Premedication
     Dosage: 400 MG, QD (BEFORE INFUSION)
     Dates: start: 20240927, end: 20241010
  7. GVOKE [Concomitant]
     Active Substance: GLUCAGON
     Indication: Type 1 diabetes mellitus
     Dosage: 1MG/0.2ML- INJECT 1MG FOR LOW BLOOD GLUCOSE MAY REPEAT EVERY 15 MINUTES IF NEEDED
     Route: 058
  8. LANTUS SOLOSTAR [Concomitant]
     Active Substance: INSULIN GLARGINE
     Dosage: 25 IU, HS (AT BEDTIME FOR 30 DAYS)
     Route: 058
  9. VITAMIN D NOS [Concomitant]
     Active Substance: CHOLECALCIFEROL\ERGOCALCIFEROL
     Indication: Vitamin D deficiency
     Dosage: 2000 U, QD
     Route: 048

REACTIONS (4)
  - Gastrooesophageal reflux disease [Recovered/Resolved]
  - Chest pain [Recovered/Resolved]
  - Vomiting [Recovered/Resolved]
  - Intercepted product administration error [Unknown]

NARRATIVE: CASE EVENT DATE: 20240930
